FAERS Safety Report 15475493 (Version 2)
Quarter: 2018Q4

REPORT INFORMATION
  Report Type: Report from Study
  Country: DE (occurrence: DE)
  Receive Date: 20181008
  Receipt Date: 20181102
  Transmission Date: 20190205
  Serious: Yes (Hospitalization, Other)
  Sender: FDA-Public Use
  Company Number: DE-PURDUE-GBR-2018-0059859

PATIENT
  Sex: Male
  Weight: 60 kg

DRUGS (13)
  1. ZOLPIDEM [Suspect]
     Active Substance: ZOLPIDEM\ZOLPIDEM TARTRATE
     Indication: PRODUCT USED FOR UNKNOWN INDICATION
     Dosage: 5 MG, PRN (AS NECESSARY)
     Route: 065
     Dates: start: 20170729, end: 20170810
  2. MORPHINE SULFATE. [Suspect]
     Active Substance: MORPHINE SULFATE
     Indication: PRODUCT USED FOR UNKNOWN INDICATION
     Dosage: 6 ML, Q1H
     Route: 042
     Dates: start: 20170729, end: 20170810
  3. TRAMAL [Suspect]
     Active Substance: TRAMADOL
     Indication: PRODUCT USED FOR UNKNOWN INDICATION
     Dosage: 3 TIMES PER DAY AS REQUIRED (200 MG DAILY)
     Route: 065
     Dates: start: 20170729, end: 20170810
  4. TRAMAL [Suspect]
     Active Substance: TRAMADOL
     Indication: PRODUCT USED FOR UNKNOWN INDICATION
     Dosage: 30 DF, PRN (3 TIMES PER DAY AS REQUIRED)
     Route: 065
     Dates: start: 20170729, end: 20170810
  5. HUMIRA [Suspect]
     Active Substance: ADALIMUMAB
     Dosage: 40 MG, WEEKLY (STRENGTH 40MG/0.4ML)
     Route: 058
     Dates: start: 2017, end: 20170722
  6. MORPHINE SULFATE. [Suspect]
     Active Substance: MORPHINE SULFATE
     Dosage: 4 ML, PRN (IN ADDITION, IF REQUIRED)
     Route: 042
     Dates: start: 20170729, end: 20170810
  7. HUMIRA [Suspect]
     Active Substance: ADALIMUMAB
     Dosage: 40 MG, WEEKLY
     Route: 058
     Dates: start: 20160412, end: 201705
  8. PANTOPRAZOL [Suspect]
     Active Substance: PANTOPRAZOLE SODIUM
     Indication: PRODUCT USED FOR UNKNOWN INDICATION
     Dosage: 40 MG, DAILY
     Route: 065
     Dates: start: 20170729, end: 20170810
  9. IBUPROFEN. [Concomitant]
     Active Substance: IBUPROFEN
     Indication: PRODUCT USED FOR UNKNOWN INDICATION
     Dosage: AS NEEDED
     Dates: start: 2014
  10. NOVAMINSULFON [Suspect]
     Active Substance: METAMIZOLE
     Indication: PRODUCT USED FOR UNKNOWN INDICATION
     Dosage: 120 DROP, DAILY
     Route: 065
     Dates: start: 20170729, end: 20170810
  11. DEKRISTOL [Concomitant]
     Active Substance: CHOLECALCIFEROL
     Indication: PRODUCT USED FOR UNKNOWN INDICATION
     Dosage: UNK
  12. HUMIRA [Suspect]
     Active Substance: ADALIMUMAB
     Indication: HIDRADENITIS
     Dosage: 160 MG, UNK (STRENGTH 40MG/0.4ML)
     Route: 058
     Dates: start: 20180906, end: 20180906
  13. HUMIRA [Suspect]
     Active Substance: ADALIMUMAB
     Indication: PSORIASIS
     Dosage: 40 MG, WEEKLY (STRENGTH 40MG/0.4ML)
     Route: 058
     Dates: start: 201707, end: 201808

REACTIONS (13)
  - Abscess [Recovering/Resolving]
  - Drug specific antibody present [Unknown]
  - Hidradenitis [Not Recovered/Not Resolved]
  - Rash erythematous [Recovered/Resolved]
  - Scab [Recovered/Resolved]
  - Pneumothorax spontaneous [Recovered/Resolved]
  - Dandruff [Recovered/Resolved]
  - Psoriasis [Not Recovered/Not Resolved]
  - Psoriasis [Recovered/Resolved]
  - Rash [Recovered/Resolved]
  - Pneumothorax [Recovered/Resolved]
  - Pneumothorax spontaneous [Recovered/Resolved]
  - Rash pruritic [Recovered/Resolved]

NARRATIVE: CASE EVENT DATE: 201605
